FAERS Safety Report 16187381 (Version 2)
Quarter: 2024Q2

REPORT INFORMATION
  Report Type: Spontaneous
  Country: IT (occurrence: IT)
  Receive Date: 20190412
  Receipt Date: 20240405
  Transmission Date: 20240716
  Serious: Yes (Hospitalization)
  Sender: FDA-Public Use
  Company Number: None

PATIENT
  Age: 42 Year
  Sex: Male

DRUGS (3)
  1. AZILECT [Suspect]
     Active Substance: RASAGILINE MESYLATE
     Indication: Parkinson^s disease
     Route: 065
     Dates: start: 20080101, end: 20180919
  2. BENSERAZIDE HYDROCHLORIDE\LEVODOPA [Suspect]
     Active Substance: BENSERAZIDE HYDROCHLORIDE\LEVODOPA
     Indication: Parkinson^s disease
     Dosage: 3 DF, QD
     Route: 065
     Dates: start: 20120101, end: 20180919
  3. STALEVO [Suspect]
     Active Substance: CARBIDOPA\ENTACAPONE\LEVODOPA
     Indication: Parkinson^s disease
     Dosage: 5 DF, QD (ABUSE/MISUSE)
     Route: 065
     Dates: start: 20120101, end: 20180919

REACTIONS (5)
  - Dopamine dysregulation syndrome [Recovering/Resolving]
  - Psychotic disorder [Recovering/Resolving]
  - Delusional disorder, persecutory type [Recovering/Resolving]
  - Gambling disorder [Recovering/Resolving]
  - Drug abuse [Recovering/Resolving]

NARRATIVE: CASE EVENT DATE: 20180221
